FAERS Safety Report 24012178 (Version 1)
Quarter: 2024Q2

REPORT INFORMATION
  Report Type: Spontaneous
  Country: US (occurrence: US)
  Receive Date: 20240625
  Receipt Date: 20240625
  Transmission Date: 20240716
  Serious: Yes (Hospitalization, Other)
  Sender: FDA-Public Use
  Company Number: US-SA-2024SA181756

PATIENT
  Age: 63 Year
  Sex: Male

DRUGS (1)
  1. RIFAMPIN [Suspect]
     Active Substance: RIFAMPIN
     Indication: Latent tuberculosis

REACTIONS (15)
  - Pericarditis lupus [Unknown]
  - Hypothermia [Unknown]
  - Hypotension [Unknown]
  - Pleural effusion [Unknown]
  - Pericardial effusion [Unknown]
  - Cardiac tamponade [Unknown]
  - Serositis [Unknown]
  - Lethargy [Unknown]
  - Encephalopathy [Unknown]
  - Diarrhoea [Unknown]
  - Obstructive shock [Unknown]
  - Hepatic failure [Unknown]
  - Drug-induced liver injury [Unknown]
  - Renal failure [Unknown]
  - Oliguria [Unknown]
